FAERS Safety Report 8374594-8 (Version None)
Quarter: 2012Q2

REPORT INFORMATION
  Report Type: 
  Country: None (occurrence: None)
  Receive Date: 20120521
  Receipt Date: 20120418
  Transmission Date: 20120825
  Serious: Yes (Hospitalization)
  Sender: FDA-Public Use
  Company Number: CN-JNJFOC-20120508861

PATIENT
  Sex: Female
  Weight: 60 kg

DRUGS (1)
  1. KETOCONAZOLE [Suspect]
     Indication: ONYCHOMYCOSIS
     Route: 048
     Dates: start: 20111029, end: 20111119

REACTIONS (5)
  - DECREASED APPETITE [None]
  - FATIGUE [None]
  - HEPATOCELLULAR INJURY [None]
  - JAUNDICE [None]
  - ABDOMINAL DISTENSION [None]
